FAERS Safety Report 8942659 (Version 2)
Quarter: 2012Q4

REPORT INFORMATION
  Report Type: 
  Country: US (occurrence: US)
  Receive Date: 20121204
  Receipt Date: 20121218
  Transmission Date: 20130627
  Serious: Yes (Hospitalization, Other)
  Sender: FDA-Public Use
  Company Number: US-BAYER-2012-125597

PATIENT
  Age: 39 Year
  Sex: Female
  Weight: 63.04 kg

DRUGS (4)
  1. YASMIN [Suspect]
     Indication: BIRTH CONTROL
     Dosage: UNK
     Dates: start: 200605, end: 20070927
  2. FEXOFENADINE [Concomitant]
     Dosage: 180 mg, UNK
     Dates: start: 20070520
  3. NAPROXEN [Concomitant]
     Dosage: 500 mg, UNK
     Dates: start: 20070727
  4. ALLEGRA [Concomitant]

REACTIONS (11)
  - Deep vein thrombosis [None]
  - Pulmonary embolism [Recovered/Resolved]
  - Oedema peripheral [None]
  - Chest pain [Recovered/Resolved]
  - Dyspnoea [Recovered/Resolved]
  - Pain [None]
  - Injury [None]
  - General physical health deterioration [None]
  - Anxiety [None]
  - Emotional distress [None]
  - Deep vein thrombosis [None]
